FAERS Safety Report 21582016 (Version 1)
Quarter: 2022Q4

REPORT INFORMATION
  Report Type: Report from Study
  Country: US (occurrence: US)
  Receive Date: 20221111
  Receipt Date: 20221111
  Transmission Date: 20230113
  Serious: Yes (Other)
  Sender: FDA-Public Use
  Company Number: US-ABBVIE-4193520

PATIENT
  Sex: Female

DRUGS (2)
  1. HUMIRA [Suspect]
     Active Substance: ADALIMUMAB
     Indication: Product used for unknown indication
     Route: 058
  2. RINVOQ [Suspect]
     Active Substance: UPADACITINIB
     Indication: Rheumatoid arthritis
     Route: 048

REACTIONS (9)
  - Malignant melanoma [Recovering/Resolving]
  - Dermatitis allergic [Recovering/Resolving]
  - Lipids increased [Recovering/Resolving]
  - Acne [Recovering/Resolving]
  - Nausea [Recovering/Resolving]
  - Weight increased [Recovering/Resolving]
  - Abdominal discomfort [Recovering/Resolving]
  - Hyperhidrosis [Recovering/Resolving]
  - Headache [Recovering/Resolving]
